FAERS Safety Report 10100380 (Version 1)
Quarter: 2014Q2

REPORT INFORMATION
  Report Type: Spontaneous
  Country: CN (occurrence: CN)
  Receive Date: 20140423
  Receipt Date: 20140423
  Transmission Date: 20141212
  Serious: Yes (Death)
  Sender: FDA-Public Use
  Company Number: CN-SA-2014SA045331

PATIENT
  Age: 53 Year
  Sex: Male
  Weight: 54 kg

DRUGS (2)
  1. ELOXATIN [Suspect]
     Indication: PROPHYLAXIS
     Route: 041
     Dates: start: 20121012, end: 20121012
  2. CETUXIMAB [Suspect]
     Indication: PRODUCT USED FOR UNKNOWN INDICATION
     Route: 065
     Dates: start: 20121012, end: 20121012

REACTIONS (16)
  - Hepatic failure [Fatal]
  - Hyperammonaemia [Fatal]
  - Blood bilirubin increased [Fatal]
  - Alanine aminotransferase increased [Fatal]
  - Aspartate aminotransferase increased [Fatal]
  - Hypersensitivity [Fatal]
  - Dyspnoea [Fatal]
  - Dizziness [Fatal]
  - Chest discomfort [Fatal]
  - Discomfort [Fatal]
  - Chills [Fatal]
  - Purpura [Fatal]
  - Somnolence [Fatal]
  - Vomiting [Fatal]
  - Loss of consciousness [Fatal]
  - Oliguria [Fatal]
